FAERS Safety Report 12768362 (Version 2)
Quarter: 2021Q3

REPORT INFORMATION
  Report Type: Spontaneous
  Country: US (occurrence: US)
  Receive Date: 20160921
  Receipt Date: 20210901
  Transmission Date: 20211014
  Serious: Yes (Other)
  Sender: FDA-Public Use
  Company Number: US-FRI-1000087647

PATIENT
  Sex: Male

DRUGS (9)
  1. CEFTAROLINE FOSAMIL UNK [Suspect]
     Active Substance: CEFTAROLINE FOSAMIL
     Indication: ENDOCARDITIS
     Dosage: 600 MG, Q8HR
  2. RIFAMPICIN [Concomitant]
     Active Substance: RIFAMPIN
     Dosage: FROM DAYS 28 TO 39
  3. DOXYCYCLINE. [Concomitant]
     Active Substance: DOXYCYCLINE
     Dosage: FROM DAYS 2 TO 30
  4. DAPTOMYCIN. [Concomitant]
     Active Substance: DAPTOMYCIN
     Dosage: ON DAYS 23 AND 24
  5. LINEZOLID. [Concomitant]
     Active Substance: LINEZOLID
     Dosage: FROM DAYS 25 TO 37
  6. CEFTAROLINE FOSAMIL UNK [Suspect]
     Active Substance: CEFTAROLINE FOSAMIL
     Indication: SUBCUTANEOUS ABSCESS
  7. GENTAMICIN. [Concomitant]
     Active Substance: GENTAMICIN
     Dosage: FROM DAYS 7 TO 9
     Route: 042
  8. CEFTAROLINE FOSAMIL UNK [Suspect]
     Active Substance: CEFTAROLINE FOSAMIL
     Indication: CEREBRAL INFARCTION
  9. CIPROFLOXACIN. [Concomitant]
     Active Substance: CIPROFLOXACIN
     Dosage: FROM DAYS 22 TO 24

REACTIONS (3)
  - Enterobacter bacteraemia [Unknown]
  - Neutropenia [Recovered/Resolved]
  - Off label use [Unknown]
